FAERS Safety Report 5590337-5 (Version None)
Quarter: 2007Q4

REPORT INFORMATION
  Report Type: 
  Country: None (occurrence: None)
  Receive Date: 20071214
  Receipt Date: 20070905
  Transmission Date: 20080405
  Serious: Yes (Other)
  Sender: FDA-Public Use
  Company Number: 2007074327

PATIENT
  Age: 61 Year
  Sex: Female
  Weight: 81.81 kg

DRUGS (6)
  1. XANAX [Suspect]
     Indication: DEPRESSION
     Dosage: 0.5MG
     Dates: start: 20030101, end: 20070101
  2. MULTI-VITAMINS [Concomitant]
  3. MULTIVITAMIN [Concomitant]
  4. FOLIC ACID [Concomitant]
  5. PROTEIN SUPPLEMENTS (PROTEIN SUPPLEMENTS) [Concomitant]
  6. VICODIN [Concomitant]

REACTIONS (8)
  - ABDOMINAL DISTENSION [None]
  - BLOOD POTASSIUM DECREASED [None]
  - DISSOCIATION [None]
  - FEELING ABNORMAL [None]
  - FLUSHING [None]
  - HEART RATE DECREASED [None]
  - MENTAL IMPAIRMENT [None]
  - WEIGHT INCREASED [None]
